FAERS Safety Report 19779723 (Version 1)
Quarter: 2021Q3

REPORT INFORMATION
  Report Type: Spontaneous
  Country: JP (occurrence: JP)
  Receive Date: 20210902
  Receipt Date: 20210902
  Transmission Date: 20211014
  Serious: Yes (Death)
  Sender: FDA-Public Use
  Company Number: JP-BAYER-2021-202451

PATIENT
  Age: 67 Year
  Sex: Male

DRUGS (3)
  1. STIVARGA [Suspect]
     Active Substance: REGORAFENIB
     Indication: COLON CANCER
     Dosage: 120MG, 1 COURSE
     Route: 048
     Dates: start: 201301
  2. STIVARGA [Suspect]
     Active Substance: REGORAFENIB
     Indication: METASTASES TO LIVER
  3. STIVARGA [Suspect]
     Active Substance: REGORAFENIB
     Indication: METASTASES TO LUNG

REACTIONS (4)
  - Palmar-plantar erythrodysaesthesia syndrome [None]
  - Dysphonia [None]
  - Off label use [None]
  - Colon cancer [Fatal]

NARRATIVE: CASE EVENT DATE: 201311
